FAERS Safety Report 10459494 (Version 1)
Quarter: 2014Q3

REPORT INFORMATION
  Report Type: Report from Study
  Country: US (occurrence: US)
  Receive Date: 20140917
  Receipt Date: 20140917
  Transmission Date: 20150326
  Serious: Yes (Death)
  Sender: FDA-Public Use
  Company Number: PHHO2014US012391

PATIENT
  Sex: Male

DRUGS (1)
  1. AFINITOR [Suspect]
     Active Substance: EVEROLIMUS
     Indication: OESOPHAGEAL ADENOCARCINOMA
     Dosage: UNK
     Dates: start: 20111015

REACTIONS (1)
  - Death [Fatal]

NARRATIVE: CASE EVENT DATE: 20111226
